FAERS Safety Report 11837964 (Version 2)
Quarter: 2015Q4

REPORT INFORMATION
  Report Type: Spontaneous
  Country: AU (occurrence: AU)
  Receive Date: 20151215
  Receipt Date: 20151228
  Transmission Date: 20160305
  Serious: Yes (Hospitalization, Other)
  Sender: FDA-Public Use
  Company Number: AU-GLAXOSMITHKLINE-AU2015GSK175671

PATIENT
  Age: 32 Year
  Sex: Male

DRUGS (1)
  1. NICABATE [Suspect]
     Active Substance: NICOTINE
     Indication: DRUG WITHDRAWAL MAINTENANCE THERAPY
     Dosage: 21 MG, QD
     Dates: start: 20151016, end: 20151019

REACTIONS (3)
  - Hypertension [Unknown]
  - Cerebrovascular accident [Unknown]
  - Limb injury [Unknown]

NARRATIVE: CASE EVENT DATE: 20151020
